FAERS Safety Report 5064611-5 (Version None)
Quarter: 2006Q3

REPORT INFORMATION
  Report Type: 
  Country: None (occurrence: None)
  Receive Date: 20060728
  Receipt Date: 20060719
  Transmission Date: 20061208
  Serious: Yes (Other)
  Sender: FDA-Public Use
  Company Number: JP-MERCK-0607USA04406

PATIENT

DRUGS (1)
  1. COZAAR [Suspect]
     Indication: HYPERTENSION
     Route: 048

REACTIONS (1)
  - PANCYTOPENIA [None]
